FAERS Safety Report 10176578 (Version 1)
Quarter: 2014Q2

REPORT INFORMATION
  Report Type: Spontaneous
  Country: US (occurrence: US)
  Receive Date: 20140516
  Receipt Date: 20140516
  Transmission Date: 20141212
  Serious: No
  Sender: FDA-Public Use
  Company Number: US-BAYER-2014-071499

PATIENT
  Age: 81 Year
  Sex: Female
  Weight: 50 kg

DRUGS (4)
  1. ALEVE TABLET [Suspect]
     Indication: BURSITIS
     Dosage: 2 DF, BID
     Route: 048
     Dates: start: 20140510, end: 20140512
  2. DYAZIDE [Concomitant]
     Dosage: UNK
  3. RANITIDINE [Concomitant]
     Dosage: UNK
  4. LOVASTATIN [Concomitant]
     Dosage: UNK

REACTIONS (4)
  - Off label use [None]
  - Extra dose administered [None]
  - Joint swelling [Not Recovered/Not Resolved]
  - Blood pressure increased [None]
